FAERS Safety Report 16885708 (Version 3)
Quarter: 2019Q4

REPORT INFORMATION
  Report Type: Report from Study
  Country: JP (occurrence: JP)
  Receive Date: 20191004
  Receipt Date: 20191015
  Transmission Date: 20200122
  Serious: Yes (Hospitalization)
  Sender: FDA-Public Use
  Company Number: JP-JNJFOC-20190835511

PATIENT
  Age: 40 Year
  Sex: Male
  Weight: 68 kg

DRUGS (46)
  1. IBRUTINIB [Suspect]
     Active Substance: IBRUTINIB
     Route: 048
     Dates: start: 20180823, end: 20190829
  2. DOMPERIDONE [Concomitant]
     Active Substance: DOMPERIDONE
     Indication: NAUSEA
     Route: 048
     Dates: start: 20190218
  3. CLOBETASOL PROPIONATE. [Concomitant]
     Active Substance: CLOBETASOL PROPIONATE
     Indication: CHRONIC GRAFT VERSUS HOST DISEASE
     Route: 061
     Dates: start: 20190316
  4. SAMTIREL [Concomitant]
     Active Substance: ATOVAQUONE
     Indication: ANTIFUNGAL PROPHYLAXIS
     Route: 048
     Dates: start: 20190316
  5. HYDROCORTISONE. [Concomitant]
     Active Substance: HYDROCORTISONE
     Indication: HAEMORRHOIDS
     Route: 061
     Dates: start: 20190412
  6. ULTRACET [Concomitant]
     Active Substance: ACETAMINOPHEN\TRAMADOL HYDROCHLORIDE
     Indication: OSTEONECROSIS
     Route: 048
     Dates: start: 20190525
  7. TOLVAPTAN [Concomitant]
     Active Substance: TOLVAPTAN
     Indication: WEIGHT INCREASED
     Route: 048
     Dates: start: 20190823
  8. PREDNISOLONE. [Concomitant]
     Active Substance: PREDNISOLONE
     Route: 048
     Dates: start: 20190510, end: 20190607
  9. TACROLIMUS MONOHYDRATE [Concomitant]
     Active Substance: TACROLIMUS
     Route: 048
     Dates: start: 20190413
  10. ROHTO V [Concomitant]
     Indication: DRY EYE
     Route: 061
     Dates: start: 20190501
  11. SODIUM HYALURONATE [Concomitant]
     Active Substance: HYALURONATE SODIUM
     Indication: DRY EYE
     Route: 061
     Dates: start: 20190510
  12. FUROSEMIDE. [Concomitant]
     Active Substance: FUROSEMIDE
     Indication: OEDEMA PERIPHERAL
     Route: 048
     Dates: start: 20190823
  13. IBRUTINIB [Suspect]
     Active Substance: IBRUTINIB
     Route: 048
     Dates: start: 20180907
  14. LOCOID [Concomitant]
     Active Substance: HYDROCORTISONE BUTYRATE
     Indication: CHRONIC GRAFT VERSUS HOST DISEASE
     Route: 061
     Dates: start: 20170314
  15. GENTACIN [Concomitant]
     Active Substance: GENTAMICIN SULFATE
     Indication: CHRONIC GRAFT VERSUS HOST DISEASE
     Route: 061
     Dates: start: 20190603
  16. WHITE PETROLATUM [Concomitant]
     Active Substance: PETROLATUM
     Indication: CHRONIC GRAFT VERSUS HOST DISEASE
     Route: 061
     Dates: start: 20180822
  17. FEXOFENADINE HYDROCHLORIDE. [Concomitant]
     Active Substance: FEXOFENADINE HYDROCHLORIDE
     Indication: INSOMNIA
     Route: 048
     Dates: start: 20190316
  18. SAMTIREL [Concomitant]
     Active Substance: ATOVAQUONE
     Indication: BLOOD BETA-D-GLUCAN INCREASED
     Route: 048
     Dates: start: 20190823, end: 20190926
  19. ACICLOVIR [Concomitant]
     Active Substance: ACYCLOVIR
     Indication: INFECTION PROPHYLAXIS
     Route: 048
     Dates: start: 20181205
  20. FLUNITRAZEPAM [Concomitant]
     Active Substance: FLUNITRAZEPAM
     Indication: INSOMNIA
     Route: 048
     Dates: start: 20181221
  21. RINDERON VG [Concomitant]
     Active Substance: BETAMETHASONE VALERATE\GENTAMICIN SULFATE
     Indication: CHRONIC GRAFT VERSUS HOST DISEASE
     Route: 061
     Dates: start: 20190412
  22. FUROSEMIDE. [Concomitant]
     Active Substance: FUROSEMIDE
     Indication: WEIGHT INCREASED
     Route: 048
     Dates: start: 20190614, end: 20190822
  23. CALONAL [Concomitant]
     Active Substance: ACETAMINOPHEN
     Indication: OSTEONECROSIS
     Route: 048
     Dates: start: 20190608
  24. CALONAL [Concomitant]
     Active Substance: ACETAMINOPHEN
     Indication: NASOPHARYNGITIS
  25. TACROLIMUS MONOHYDRATE [Concomitant]
     Active Substance: TACROLIMUS
     Indication: CHRONIC GRAFT VERSUS HOST DISEASE
     Route: 048
     Dates: start: 20180808, end: 20190412
  26. IBRUTINIB [Suspect]
     Active Substance: IBRUTINIB
     Indication: CHRONIC GRAFT VERSUS HOST DISEASE
     Route: 048
     Dates: start: 20181220
  27. SAMTIREL [Concomitant]
     Active Substance: ATOVAQUONE
     Indication: ANTIFUNGAL PROPHYLAXIS
     Route: 048
     Dates: start: 20190413, end: 20190822
  28. MAGNESIUM OXIDE. [Concomitant]
     Active Substance: MAGNESIUM OXIDE
     Indication: CONSTIPATION
     Route: 048
     Dates: start: 20181221
  29. FEBURIC [Concomitant]
     Active Substance: FEBUXOSTAT
     Indication: HYPERURICAEMIA
     Route: 048
     Dates: start: 20181219
  30. BROTIZOLAM [Concomitant]
     Active Substance: BROTIZOLAM
     Indication: INSOMNIA
     Route: 048
     Dates: start: 20190218
  31. PREDNISOLONE. [Concomitant]
     Active Substance: PREDNISOLONE
     Indication: CHRONIC GRAFT VERSUS HOST DISEASE
     Route: 048
     Dates: start: 20181130, end: 20190117
  32. TOLVAPTAN [Concomitant]
     Active Substance: TOLVAPTAN
     Indication: OEDEMA PERIPHERAL
  33. TAKECAB [Concomitant]
     Active Substance: VONOPRAZAN FUMURATE
     Indication: PROPHYLAXIS AGAINST GASTROINTESTINAL ULCER
     Route: 048
     Dates: start: 20170705
  34. LOXONIN [Concomitant]
     Active Substance: LOXOPROFEN SODIUM
     Indication: OSTEONECROSIS
     Route: 062
     Dates: start: 20190614
  35. PREDNISOLONE. [Concomitant]
     Active Substance: PREDNISOLONE
     Route: 048
     Dates: start: 20190606
  36. TOLVAPTAN [Concomitant]
     Active Substance: TOLVAPTAN
     Indication: WEIGHT INCREASED
     Route: 048
     Dates: start: 20190919
  37. HEPARINOID [Concomitant]
     Active Substance: CHONDROITIN SULFATE (BOVINE)
     Indication: CHRONIC GRAFT VERSUS HOST DISEASE
     Route: 061
     Dates: start: 20181219
  38. ROSUVASTATIN. [Concomitant]
     Active Substance: ROSUVASTATIN
     Indication: LIPID METABOLISM DISORDER
     Route: 048
     Dates: start: 20190118
  39. LOXOPROFEN [Concomitant]
     Active Substance: LOXOPROFEN
     Indication: OSTEONECROSIS
     Route: 048
     Dates: start: 20190525
  40. BESOFTEN [Concomitant]
     Active Substance: PENTOSAN POLYSULFATE SODIUM
     Indication: CHRONIC GRAFT VERSUS HOST DISEASE
     Route: 061
     Dates: start: 20170314
  41. TALION                             /01587402/ [Concomitant]
     Active Substance: BEPOTASTINE BESYLATE
     Indication: INSOMNIA
     Route: 048
     Dates: start: 20190325
  42. SHAKUYAKUKANZOTO [Concomitant]
     Active Substance: HERBALS
     Indication: MUSCULOSKELETAL STIFFNESS
     Route: 048
     Dates: start: 20190614
  43. TOLVAPTAN [Concomitant]
     Active Substance: TOLVAPTAN
     Indication: OEDEMA PERIPHERAL
  44. PREDNISOLONE. [Concomitant]
     Active Substance: PREDNISOLONE
     Route: 048
     Dates: start: 20190118, end: 20190315
  45. PREDNISOLONE. [Concomitant]
     Active Substance: PREDNISOLONE
     Route: 048
     Dates: start: 20190316, end: 20190412
  46. PREDNISOLONE. [Concomitant]
     Active Substance: PREDNISOLONE
     Route: 048
     Dates: start: 20190413, end: 20190509

REACTIONS (2)
  - Cellulitis [Recovered/Resolved]
  - Liver disorder [Recovered/Resolved]

NARRATIVE: CASE EVENT DATE: 20190826
